FAERS Safety Report 15924195 (Version 1)
Quarter: 2019Q1

REPORT INFORMATION
  Report Type: Spontaneous
  Country: US (occurrence: US)
  Receive Date: 20190114
  Receipt Date: 20190114
  Transmission Date: 20190417
  Serious: Yes (Hospitalization)
  Sender: FDA-Public Use
  Company Number: None

PATIENT
  Age: 57 Year
  Sex: Male

DRUGS (16)
  1. SILDENAFIL 20MG [Suspect]
     Active Substance: SILDENAFIL
     Indication: CARDIAC FAILURE
     Route: 048
     Dates: start: 20170725
  2. WARFARIN [Concomitant]
     Active Substance: WARFARIN
  3. POT CHLORIDE [Concomitant]
     Active Substance: POTASSIUM CHLORIDE
  4. NYSTATIN. [Concomitant]
     Active Substance: NYSTATIN
  5. ALPRAZOLAM. [Suspect]
     Active Substance: ALPRAZOLAM
  6. ALLOPURINOL. [Concomitant]
     Active Substance: ALLOPURINOL
  7. TORESMIDE [Concomitant]
  8. DIPXIDAMOLE [Concomitant]
  9. AMIODARONE [Concomitant]
     Active Substance: AMIODARONE
  10. MYCOPHENOLATE [Concomitant]
     Active Substance: MYCOPHENOLIC ACID
  11. MICROLET [Concomitant]
  12. HYDRALAZINE [Concomitant]
     Active Substance: HYDRALAZINE HYDROCHLORIDE
  13. FEUROSEMIDE [Concomitant]
  14. VALACYCLOVIR [Concomitant]
     Active Substance: VALACYCLOVIR HYDROCHLORIDE
  15. NOVOLOQ [Concomitant]
  16. HYDRALAZINE [Concomitant]
     Active Substance: HYDRALAZINE HYDROCHLORIDE

REACTIONS (1)
  - Heart transplant [None]
